FAERS Safety Report 9099662 (Version 1)
Quarter: 2013Q1

REPORT INFORMATION
  Report Type: Spontaneous
  Country: FR (occurrence: FR)
  Receive Date: 20130214
  Receipt Date: 20130214
  Transmission Date: 20140127
  Serious: No
  Sender: FDA-Public Use
  Company Number: FR-ROCHE-1190020

PATIENT
  Age: 7 Year
  Sex: Female
  Weight: 21 kg

DRUGS (4)
  1. TAMIFLU [Suspect]
     Indication: INFLUENZA
     Dosage: STRENGTH: 6 MG/ML
     Route: 048
  2. DOLIPRANE [Concomitant]
  3. ASPEGIC [Concomitant]
  4. TOPLEXIL (FRANCE) [Concomitant]

REACTIONS (2)
  - Overdose [Unknown]
  - No adverse event [Unknown]
